FAERS Safety Report 20747092 (Version 2)
Quarter: 2022Q3

REPORT INFORMATION
  Report Type: Spontaneous
  Country: US (occurrence: US)
  Receive Date: 20220425
  Receipt Date: 20220721
  Transmission Date: 20221027
  Serious: No
  Sender: FDA-Public Use
  Company Number: US-PFIZER INC-202200344371

PATIENT
  Age: 61 Year
  Sex: Female

DRUGS (1)
  1. IBRANCE [Suspect]
     Active Substance: PALBOCICLIB
     Dosage: UNK
     Dates: start: 20220224

REACTIONS (3)
  - Nasopharyngitis [Unknown]
  - Cough [Unknown]
  - Insomnia [Unknown]

NARRATIVE: CASE EVENT DATE: 20220228
